FAERS Safety Report 5941193-4 (Version None)
Quarter: 2008Q4

REPORT INFORMATION
  Report Type: 
  Country: None (occurrence: None)
  Receive Date: 20081104
  Receipt Date: 20081024
  Transmission Date: 20090506
  Serious: Yes (Other)
  Sender: FDA-Public Use
  Company Number: US-PFIZER INC-2008072665

PATIENT
  Age: 78 Year
  Sex: Female

DRUGS (1)
  1. XAL-EASE [Suspect]

REACTIONS (2)
  - BLINDNESS [None]
  - DEVICE INEFFECTIVE [None]
